FAERS Safety Report 7048207-1 (Version None)
Quarter: 2010Q4

REPORT INFORMATION
  Report Type: 
  Country: None (occurrence: None)
  Receive Date: 20101015
  Receipt Date: 20101013
  Transmission Date: 20110411
  Serious: Yes (Death)
  Sender: FDA-Public Use
  Company Number: PHHY2010CA66515

PATIENT
  Sex: Female

DRUGS (13)
  1. ACLASTA [Suspect]
     Indication: OSTEOPOROSIS
     Dosage: 5 MG
     Dates: start: 20091106
  2. ASAPHEN [Concomitant]
  3. METOPROLOL [Concomitant]
  4. SYNTHROID [Concomitant]
  5. NEXIUM [Concomitant]
  6. LIPITOR [Concomitant]
  7. COUMADIN [Concomitant]
  8. COLACE [Concomitant]
  9. DOMPERIDONE [Concomitant]
  10. SYMBICORT [Concomitant]
  11. BRICANYL [Concomitant]
  12. FLOVENT [Concomitant]
  13. VENTOLIN [Concomitant]
     Dosage: UNK

REACTIONS (1)
  - TONGUE NEOPLASM [None]
